FAERS Safety Report 23224163 (Version 1)
Quarter: 2023Q4

REPORT INFORMATION
  Report Type: Spontaneous
  Country: US (occurrence: US)
  Receive Date: 20231124
  Receipt Date: 20231124
  Transmission Date: 20240110
  Serious: No
  Sender: FDA-Public Use
  Company Number: US-OPELLA-2023OHG013903

PATIENT
  Age: 73 Year
  Sex: Male

DRUGS (1)
  1. ASPERCREME WITH LIDOCAINE [Suspect]
     Active Substance: LIDOCAINE
     Indication: Pain
     Route: 065

REACTIONS (2)
  - Drug effect less than expected [Unknown]
  - No adverse event [Unknown]

NARRATIVE: CASE EVENT DATE: 20231101
